FAERS Safety Report 18810475 (Version 2)
Quarter: 2021Q1

REPORT INFORMATION
  Report Type: Spontaneous
  Country: US (occurrence: US)
  Receive Date: 20210129
  Receipt Date: 20210202
  Transmission Date: 20210419
  Serious: No
  Sender: FDA-Public Use
  Company Number: US-PFIZER INC-2021070405

PATIENT
  Age: 52 Year
  Sex: Male

DRUGS (1)
  1. CAVERJECT [Suspect]
     Active Substance: ALPROSTADIL
     Dosage: 40 UG

REACTIONS (3)
  - Product storage error [Unknown]
  - Product administration error [Unknown]
  - Drug ineffective [Unknown]
